FAERS Safety Report 4734598-0 (Version None)
Quarter: 2005Q3

REPORT INFORMATION
  Report Type: 
  Country: None (occurrence: None)
  Receive Date: 20050804
  Receipt Date: 20050718
  Transmission Date: 20060218
  Serious: Yes (Hospitalization)
  Sender: FDA-Public Use
  Company Number: 2005UW10777

PATIENT
  Sex: Female

DRUGS (6)
  1. CRESTOR [Suspect]
     Route: 048
     Dates: start: 20050224, end: 20050302
  2. HYDROCHLOROTHIAZIDE [Suspect]
     Indication: OEDEMA PERIPHERAL
     Dates: start: 20050224, end: 20050302
  3. INSULIN [Concomitant]
  4. AVANDIA [Concomitant]
  5. METFORMIN [Concomitant]
  6. CADUET [Concomitant]
     Dates: end: 20050224

REACTIONS (7)
  - BLOOD UREA INCREASED [None]
  - DEHYDRATION [None]
  - HYPONATRAEMIA [None]
  - NAUSEA [None]
  - PAIN [None]
  - RHABDOMYOLYSIS [None]
  - VOMITING [None]
